FAERS Safety Report 7208020-9 (Version None)
Quarter: 2010Q4

REPORT INFORMATION
  Report Type: 
  Country: None (occurrence: None)
  Receive Date: 20101222
  Receipt Date: 20101209
  Transmission Date: 20110411
  Serious: Yes (Hospitalization)
  Sender: FDA-Public Use
  Company Number: UTC-003161

PATIENT
  Age: 62 Year
  Sex: Female

DRUGS (3)
  1. REMODULIN (1 MILLIGRAM/MILLILITERS, INJECTION FOR INFUSION)(TREPROSTIN [Suspect]
     Dosage: 15.84 UG/KG (0.011 UG/KG,1 IN 1 MIN), INTRAVENOUS
     Route: 042
     Dates: start: 20100514, end: 20101208
  2. COUMADIN [Concomitant]
  3. AMIODARONE (AMIODARONE) (TABLETS) [Concomitant]

REACTIONS (1)
  - RENAL FAILURE [None]
